FAERS Safety Report 7272516-4 (Version None)
Quarter: 2011Q1

REPORT INFORMATION
  Report Type: 
  Country: None (occurrence: None)
  Receive Date: 20110203
  Receipt Date: 20110127
  Transmission Date: 20110831
  Serious: Yes (Hospitalization, Other)
  Sender: FDA-Public Use
  Company Number: FR-B.I. PHARMACEUTICALS,INC./RIDGEFIELD-2009-FF-00834FF

PATIENT
  Sex: Male
  Weight: 112 kg

DRUGS (3)
  1. LOVENOX [Concomitant]
  2. PRADAXA [Suspect]
     Indication: THROMBOSIS PROPHYLAXIS
     Dosage: 220 MG
     Route: 048
     Dates: start: 20091124, end: 20091201
  3. PRADAXA [Suspect]
     Indication: HIP ARTHROPLASTY

REACTIONS (3)
  - DEVICE DISLOCATION [None]
  - DEEP VEIN THROMBOSIS [None]
  - PULMONARY EMBOLISM [None]
